FAERS Safety Report 5003842-7 (Version None)
Quarter: 2006Q2

REPORT INFORMATION
  Report Type: 
  Country: None (occurrence: None)
  Receive Date: 20060515
  Receipt Date: 20060502
  Transmission Date: 20061013
  Serious: Yes (Hospitalization)
  Sender: FDA-Public Use
  Company Number: 200610424BFR

PATIENT
  Age: 82 Year
  Sex: Female

DRUGS (4)
  1. CIPROFLOXACIN HCL [Suspect]
     Dosage: 500 MG, QD, ORAL
     Route: 048
     Dates: start: 20060106, end: 20060106
  2. BACTRIM [Suspect]
     Dosage: QD, ORAL
     Route: 048
     Dates: start: 20060107, end: 20060109
  3. FONZYLANE                      (BUFLOMEDIL HYDROCHLORIDE) [Suspect]
     Dosage: 100 MG, QD, INTRAVENOUS
     Route: 042
     Dates: start: 20060114, end: 20060115
  4. PYOSTACINE                    (PRISTINAMYCIN) [Suspect]
     Dosage: 2 G, QD, ORAL
     Route: 048
     Dates: start: 20060106, end: 20060107

REACTIONS (5)
  - ABDOMINAL PAIN [None]
  - ARTHRALGIA [None]
  - HENOCH-SCHONLEIN PURPURA [None]
  - INFECTED SKIN ULCER [None]
  - SUPERINFECTION [None]
